FAERS Safety Report 7374071-7 (Version None)
Quarter: 2011Q1

REPORT INFORMATION
  Report Type: 
  Country: None (occurrence: None)
  Receive Date: 20110315
  Receipt Date: 20110301
  Transmission Date: 20110831
  Serious: Yes (Hospitalization)
  Sender: FDA-Public Use
  Company Number: DSJ-2011-04443

PATIENT
  Age: 7 Decade
  Sex: Female

DRUGS (6)
  1. BENICAR HCT [Suspect]
     Indication: HYPERTENSION
     Dosage: 20/12.5 MG (1 IN 1 D), PER ORAL ,40/12.5 MG (1 IN 1 D),PER ORAL
     Route: 048
     Dates: start: 20070101, end: 20101201
  2. LEVOTHYROXINE SODIUM (LEVOTHYROXINE SODIUM)(LEVOTHYROXINE SODIUM) [Concomitant]
  3. RABEPRAZOLE (RABEPRAZOLE) (RABEPRAZOLE) [Concomitant]
  4. ORLISTAT (ORLISTAT)(ORLISTAT) [Concomitant]
  5. ATENOLOL [Suspect]
     Indication: HYPERTENSION
     Dosage: 25 MG, PER ORAL
     Route: 048
     Dates: start: 20100801
  6. CALCIUM (CALCIUM) (CALCIUM) [Concomitant]

REACTIONS (5)
  - THYROID NEOPLASM [None]
  - FATIGUE [None]
  - SOMNOLENCE [None]
  - DRUG INEFFECTIVE [None]
  - ARRHYTHMIA [None]
